FAERS Safety Report 6905378-2 (Version None)
Quarter: 2010Q3

REPORT INFORMATION
  Report Type: 
  Country: None (occurrence: None)
  Receive Date: 20100804
  Receipt Date: 20100729
  Transmission Date: 20110219
  Serious: Yes (Life-Threatening, Hospitalization)
  Sender: FDA-Public Use
  Company Number: NL-CELGENEUS-114-CTHAL-09110747

PATIENT
  Sex: Male
  Weight: 80 kg

DRUGS (29)
  1. THALIDOMIDE [Suspect]
     Indication: MULTIPLE MYELOMA
     Route: 048
     Dates: start: 20091110
  2. THALIDOMIDE [Suspect]
     Route: 048
     Dates: start: 20090526, end: 20091108
  3. MELPHALAN [Suspect]
     Indication: MULTIPLE MYELOMA
     Route: 048
     Dates: start: 20091110
  4. MELPHALAN [Suspect]
     Route: 048
     Dates: start: 20090526
  5. PREDNISONE [Suspect]
     Indication: MULTIPLE MYELOMA
     Route: 048
     Dates: start: 20091110
  6. PREDNISONE [Suspect]
     Route: 048
     Dates: start: 20090526
  7. ALKERAN [Concomitant]
     Indication: MULTIPLE MYELOMA
     Route: 048
     Dates: end: 20091109
  8. ACENOCOUMAROL [Concomitant]
     Indication: ATRIAL FIBRILLATION
     Route: 048
     Dates: start: 20090627
  9. ACENOCOUMAROL [Concomitant]
     Route: 048
     Dates: start: 20091111, end: 20091119
  10. METOPROLOL [Concomitant]
     Indication: HYPERTENSION
     Route: 048
     Dates: start: 20060101
  11. MICARDIS [Concomitant]
     Indication: HYPERTENSION
     Route: 048
     Dates: start: 20060101
  12. CRESTOR [Concomitant]
     Indication: HYPERCHOLESTEROLAEMIA
     Route: 048
     Dates: start: 20060101
  13. XATRAL [Concomitant]
     Route: 048
     Dates: start: 20070101
  14. OMEPRAZOLE [Concomitant]
     Route: 048
     Dates: start: 20050101
  15. MOVICOLON [Concomitant]
     Route: 048
     Dates: start: 20090501
  16. COZAAR [Concomitant]
     Indication: HYPERTENSION
     Route: 048
     Dates: start: 20091110
  17. LIPITOR [Concomitant]
     Route: 048
     Dates: start: 20091110
  18. SOTALOL HCL [Concomitant]
     Indication: VENTRICULAR TACHYCARDIA
     Route: 048
     Dates: start: 20091118
  19. SOTALOL HCL [Concomitant]
     Route: 048
     Dates: start: 20091111, end: 20091112
  20. SOTALOL HCL [Concomitant]
     Route: 048
     Dates: start: 20091112, end: 20091118
  21. ACETAMINOPHEN [Concomitant]
     Indication: PAIN
     Route: 048
     Dates: start: 20091112
  22. BONEFOS [Concomitant]
     Indication: HYPERCALCAEMIA
     Route: 048
     Dates: start: 20090501
  23. OSTAC [Concomitant]
     Indication: HYPERCALCAEMIA
     Route: 048
     Dates: start: 20091113
  24. DIGOXIN [Concomitant]
     Indication: ARRHYTHMIA
     Route: 048
     Dates: start: 20091116
  25. CLEXANE [Concomitant]
     Route: 058
     Dates: start: 20091119, end: 20091123
  26. NEXIUM [Concomitant]
     Indication: PROPHYLAXIS
     Route: 048
     Dates: start: 20091110
  27. DIPRIVAN [Concomitant]
     Indication: ANAESTHESIA
     Route: 065
  28. FENTANYL CITRATE [Concomitant]
     Indication: PAIN
     Route: 051
     Dates: start: 20091109, end: 20091112
  29. MORPHINE [Concomitant]
     Indication: PAIN
     Dosage: PCA PUMP
     Route: 051
     Dates: start: 20091112, end: 20091113

REACTIONS (1)
  - VENTRICULAR FIBRILLATION [None]
